FAERS Safety Report 19656123 (Version 1)
Quarter: 2021Q3

REPORT INFORMATION
  Report Type: Spontaneous
  Country: FR (occurrence: FR)
  Receive Date: 20210804
  Receipt Date: 20210804
  Transmission Date: 20211014
  Serious: Yes (Hospitalization)
  Sender: FDA-Public Use
  Company Number: FR-MYLANLABS-2021M1047184

PATIENT
  Age: 83 Year
  Sex: Male

DRUGS (2)
  1. LEVOFLOXACIN. [Suspect]
     Active Substance: LEVOFLOXACIN
     Indication: OSTEITIS
     Dosage: 500 MILLIGRAM, QD
     Route: 048
     Dates: start: 20210121
  2. BACTRIM [Suspect]
     Active Substance: SULFAMETHOXAZOLE\TRIMETHOPRIM
     Indication: OSTEITIS
     Dosage: 3 DOSAGE FORM, QD
     Route: 048
     Dates: start: 20210121, end: 20210125

REACTIONS (4)
  - Dizziness [Recovered/Resolved]
  - Cerebellar syndrome [Recovering/Resolving]
  - Acute kidney injury [Not Recovered/Not Resolved]
  - Confusional state [Recovered/Resolved]

NARRATIVE: CASE EVENT DATE: 20210123
